FAERS Safety Report 19814566 (Version 1)
Quarter: 2021Q3

REPORT INFORMATION
  Report Type: Spontaneous
  Country: CA (occurrence: CA)
  Receive Date: 20210910
  Receipt Date: 20210910
  Transmission Date: 20211014
  Serious: Yes (Other)
  Sender: FDA-Public Use
  Company Number: CA-PFIZER INC-202101015883

PATIENT
  Age: 76 Year
  Sex: Male

DRUGS (27)
  1. MOMETASONE [Concomitant]
     Active Substance: MOMETASONE
     Dosage: UNK, AS NEEDED (PRN)
  2. VITAMIN A [RETINOL] [Concomitant]
     Active Substance: RETINOL
     Dosage: UNK
  3. POTASSIUM CHLORIDE. [Concomitant]
     Active Substance: POTASSIUM CHLORIDE
     Dosage: 1 DF
  4. ATORVASTATIN [Concomitant]
     Active Substance: ATORVASTATIN
     Dosage: 20 MG, DAILY
  5. BIOTIN [Concomitant]
     Active Substance: BIOTIN
     Dosage: 1 DF
  6. NIACINAMIDE [Concomitant]
     Active Substance: NIACINAMIDE
     Dosage: 1 DF
  7. VITAMIN E [Concomitant]
     Active Substance: .ALPHA.-TOCOPHEROL
     Dosage: UNK
  8. XELJANZ [Suspect]
     Active Substance: TOFACITINIB CITRATE
     Indication: RHEUMATOID ARTHRITIS
     Dosage: 5 MG, 2X/DAY
     Route: 048
     Dates: start: 20210727
  9. XELJANZ [Suspect]
     Active Substance: TOFACITINIB CITRATE
     Dosage: 5 MG, 2X/DAY
     Route: 048
  10. MAGNESIUM [Concomitant]
     Active Substance: MAGNESIUM
     Dosage: 1 DF
  11. INOSITOL [Concomitant]
     Active Substance: INOSITOL
     Dosage: 1 DF
  12. ASA [Concomitant]
     Active Substance: ASPIRIN
     Dosage: 81 MG, DAILY
  13. TAMSULOSIN [Concomitant]
     Active Substance: TAMSULOSIN
     Dosage: 0.4 MG, DAILY
  14. VITAMINS [ASCORBIC ACID;ERGOCALCIFEROL;NICOTINAMIDE;RETINOL;RIBOFLAVIN [Concomitant]
     Active Substance: ASCORBIC ACID\ERGOCALCIFEROL\NIACINAMIDE\RETINOL\RIBOFLAVIN\THIAMINE
     Dosage: UNK
  15. TYLENOL ARTHRITIS PAIN [Concomitant]
     Active Substance: ACETAMINOPHEN
     Dosage: UNK
  16. CALCIUM [Concomitant]
     Active Substance: CALCIUM
     Dosage: 1 DF
  17. VALSARTAN. [Concomitant]
     Active Substance: VALSARTAN
     Dosage: 80 MG, DAILY
  18. ADVIL 12 HOUR [Concomitant]
     Active Substance: IBUPROFEN
     Dosage: UNK UNK, AS NEEDED (PRN)
  19. TYLENOL [Concomitant]
     Active Substance: ACETAMINOPHEN
     Dosage: UNK, AS NEEDED (PRN)
  20. CHROMIUM [Concomitant]
     Active Substance: CHROMIC CHLORIDE\CHROMIUM
     Dosage: 1 DF
  21. SELENIUM [Concomitant]
     Active Substance: SELENIUM
     Dosage: 1 DF
  22. NIACIN. [Concomitant]
     Active Substance: NIACIN
  23. VITAMIN B COMPLEX [Concomitant]
     Active Substance: CYANOCOBALAMIN\DEXPANTHENOL\NIACINAMIDE\PYRIDOXINE HYDROCHLORIDE\RIBOFLAVIN 5^-PHOSPHATE SODIUM\THIAMINE HYDROCHLORIDE\VITAMIN B COMPLEX
     Dosage: UNK
  24. PREDNISONE. [Concomitant]
     Active Substance: PREDNISONE
     Dosage: UNK, AS NEEDED (PRN)
  25. SYMBICORT [Concomitant]
     Active Substance: BUDESONIDE\FORMOTEROL FUMARATE DIHYDRATE
     Dosage: 2 PUFFS
  26. FOLIC ACID. [Concomitant]
     Active Substance: FOLIC ACID
     Dosage: 1 DF
  27. ZINC. [Concomitant]
     Active Substance: ZINC
     Dosage: 1 DF

REACTIONS (16)
  - Pain in extremity [Unknown]
  - Headache [Recovered/Resolved]
  - Diarrhoea [Recovered/Resolved]
  - Balance disorder [Unknown]
  - Arthralgia [Unknown]
  - Insomnia [Unknown]
  - Abdominal discomfort [Not Recovered/Not Resolved]
  - Joint swelling [Unknown]
  - Flatulence [Not Recovered/Not Resolved]
  - Peripheral swelling [Unknown]
  - Burning sensation [Unknown]
  - Bowel movement irregularity [Recovered/Resolved]
  - Asthma [Unknown]
  - Muscle spasms [Not Recovered/Not Resolved]
  - Condition aggravated [Unknown]
  - Abdominal pain upper [Not Recovered/Not Resolved]

NARRATIVE: CASE EVENT DATE: 2021
